FAERS Safety Report 19087246 (Version 1)
Quarter: 2021Q2

REPORT INFORMATION
  Report Type: Spontaneous
  Country: US (occurrence: US)
  Receive Date: 20210402
  Receipt Date: 20210402
  Transmission Date: 20210717
  Serious: Yes (Hospitalization)
  Sender: FDA-Public Use
  Company Number: None

PATIENT
  Age: 62 Year
  Sex: Female
  Weight: 61.9 kg

DRUGS (3)
  1. ELOXATIN [Concomitant]
     Active Substance: OXALIPLATIN
  2. LEUCOVORIN CALCIUM. [Concomitant]
     Active Substance: LEUCOVORIN CALCIUM
  3. 5?FLUOROURACIL [Suspect]
     Active Substance: FLUOROURACIL

REACTIONS (8)
  - Pneumonia [None]
  - Respiratory arrest [None]
  - Radiation injury [None]
  - Unresponsive to stimuli [None]
  - Cardiac arrest [None]
  - Hyponatraemia [None]
  - Traumatic lung injury [None]
  - Superinfection [None]

NARRATIVE: CASE EVENT DATE: 20210227
